FAERS Safety Report 23779046 (Version 1)
Quarter: 2024Q2

REPORT INFORMATION
  Report Type: Spontaneous
  Country: US (occurrence: None)
  Receive Date: 20240424
  Receipt Date: 20240424
  Transmission Date: 20240716
  Serious: Yes (Hospitalization)
  Sender: FDA-Public Use
  Company Number: None

PATIENT
  Age: 32 Year
  Sex: Male
  Weight: 84 kg

DRUGS (1)
  1. BUPROPION HYDROCHLORIDE [Suspect]
     Active Substance: BUPROPION HYDROCHLORIDE
     Indication: Depression
     Dosage: 150 MG AM PO?
     Route: 048
     Dates: start: 20230328, end: 20230416

REACTIONS (8)
  - Pruritus [None]
  - Rash [None]
  - Paraesthesia [None]
  - Hypoaesthesia [None]
  - Hypoaesthesia [None]
  - Palatal oedema [None]
  - Pharyngeal swelling [None]
  - Tongue pruritus [None]

NARRATIVE: CASE EVENT DATE: 20230415
